FAERS Safety Report 7240691-3 (Version None)
Quarter: 2011Q1

REPORT INFORMATION
  Report Type: 
  Country: None (occurrence: None)
  Receive Date: 20110124
  Receipt Date: 20100830
  Transmission Date: 20110831
  Serious: No
  Sender: FDA-Public Use
  Company Number: US-KINGPHARMUSA00001-K201001096

PATIENT
  Sex: Female
  Weight: 71.655 kg

DRUGS (6)
  1. LAMICTAL [Concomitant]
     Indication: BIPOLAR DISORDER
     Dosage: UNK
  2. EPIPEN [Suspect]
     Indication: HYPERSENSITIVITY
     Dosage: 0.3 MG, SINGLE
     Route: 030
     Dates: start: 20100801, end: 20100801
  3. EPIPEN [Suspect]
     Dosage: 0.3 MG, PRN
     Route: 030
     Dates: start: 19950101
  4. ADDERALL 10 [Concomitant]
     Indication: BIPOLAR DISORDER
     Dosage: UNK
  5. BENADRYL [Concomitant]
     Dosage: UNK
     Route: 060
  6. CELEXA [Concomitant]
     Indication: BIPOLAR DISORDER
     Dosage: UNK

REACTIONS (1)
  - INJECTION SITE HAEMATOMA [None]
